FAERS Safety Report 21896741 (Version 1)
Quarter: 2023Q1

REPORT INFORMATION
  Report Type: Spontaneous
  Country: US (occurrence: US)
  Receive Date: 20230123
  Receipt Date: 20230123
  Transmission Date: 20230418
  Serious: Yes (Hospitalization, Other)
  Sender: FDA-Public Use
  Company Number: US-002147023-NVSC2023US011609

PATIENT
  Sex: Male

DRUGS (1)
  1. HYCAMTIN [Suspect]
     Active Substance: TOPOTECAN HYDROCHLORIDE
     Indication: Lung carcinoma cell type unspecified stage 0
     Dosage: 5 MG, QD (1 TIME A DAY ON DAYS 1-5 OF EACH 21-DAY CYCLE)
     Route: 048
     Dates: start: 202212

REACTIONS (2)
  - Peripheral swelling [Unknown]
  - Thrombosis [Unknown]
